FAERS Safety Report 16820356 (Version 1)
Quarter: 2019Q3

REPORT INFORMATION
  Report Type: Spontaneous
  Country: US (occurrence: US)
  Receive Date: 20190918
  Receipt Date: 20190918
  Transmission Date: 20191005
  Serious: Yes (Other)
  Sender: FDA-Public Use
  Company Number: US-SA-2019SA257045

PATIENT
  Age: 37 Year
  Sex: Male
  Weight: 105.7 kg

DRUGS (1)
  1. DUPIXENT [Suspect]
     Active Substance: DUPILUMAB

REACTIONS (3)
  - Eosinophil count increased [Unknown]
  - Syncope [Unknown]
  - Seizure [Unknown]
